FAERS Safety Report 22192959 (Version 1)
Quarter: 2023Q2

REPORT INFORMATION
  Report Type: Other
  Country: US (occurrence: US)
  Receive Date: 20230410
  Receipt Date: 20230410
  Transmission Date: 20230722
  Serious: Yes (Death)
  Sender: FDA-Public Use
  Company Number: US-ALVOGEN-2023089993

PATIENT
  Age: 65 Year
  Sex: Female

DRUGS (8)
  1. LEVOTHYROXINE [Suspect]
     Active Substance: LEVOTHYROXINE
     Indication: Suicide attempt
     Route: 048
  2. METOPROLOL [Suspect]
     Active Substance: METOPROLOL
     Indication: Suicide attempt
     Route: 048
  3. BIOTIN [Suspect]
     Active Substance: BIOTIN
     Indication: Suicide attempt
     Route: 048
  4. LORATADINE [Suspect]
     Active Substance: LORATADINE
     Indication: Suicide attempt
     Route: 048
  5. ZYRTEC [Suspect]
     Active Substance: CETIRIZINE HYDROCHLORIDE
     Indication: Suicide attempt
     Route: 048
  6. MAGNESIUM OXIDE [Suspect]
     Active Substance: MAGNESIUM OXIDE
     Indication: Suicide attempt
     Route: 048
  7. NITROGLYCERIN [Suspect]
     Active Substance: NITROGLYCERIN
     Indication: Suicide attempt
     Route: 048
  8. VITAMIN D [Suspect]
     Active Substance: VITAMIN D NOS
     Indication: Suicide attempt
     Route: 048

REACTIONS (1)
  - Completed suicide [Fatal]
